FAERS Safety Report 9633711 (Version 2)
Quarter: 2013Q4

REPORT INFORMATION
  Report Type: Spontaneous
  Country: DE (occurrence: DE)
  Receive Date: 20131021
  Receipt Date: 20131021
  Transmission Date: 20140711
  Serious: Yes (Hospitalization)
  Sender: FDA-Public Use
  Company Number: DE-PFIZER INC-2013219219

PATIENT
  Age: 66 Year
  Sex: Female

DRUGS (2)
  1. CELEBREX [Suspect]
     Indication: BACK PAIN
     Dosage: 200 MG, 2X/DAY
     Route: 048
     Dates: start: 20120907, end: 201212
  2. INSULIN [Concomitant]

REACTIONS (6)
  - Pruritus [Not Recovered/Not Resolved]
  - Wound [Not Recovered/Not Resolved]
  - Blister [Unknown]
  - Intervertebral discitis [Unknown]
  - Staphylococcal infection [Unknown]
  - Pain in extremity [Unknown]
